FAERS Safety Report 7927875-3 (Version None)
Quarter: 2011Q4

REPORT INFORMATION
  Report Type: 
  Country: None (occurrence: None)
  Receive Date: 20111118
  Receipt Date: 20111108
  Transmission Date: 20120403
  Serious: Yes (Other)
  Sender: FDA-Public Use
  Company Number: FR-JNJFOC-20110900547

PATIENT
  Sex: Female

DRUGS (1)
  1. STELARA [Suspect]
     Indication: PSORIASIS
     Dosage: INJECTIONS ON 15-APR, 16-MAY AND 15-JUN
     Route: 058
     Dates: start: 20110415, end: 20110615

REACTIONS (6)
  - PRURITUS GENERALISED [None]
  - INSOMNIA [None]
  - DISTURBANCE IN ATTENTION [None]
  - BIPOLAR I DISORDER [None]
  - PSYCHOMOTOR HYPERACTIVITY [None]
  - PRURITUS [None]
